FAERS Safety Report 8108373-3 (Version None)
Quarter: 2012Q1

REPORT INFORMATION
  Report Type: 
  Country: None (occurrence: None)
  Receive Date: 20120202
  Receipt Date: 20120111
  Transmission Date: 20120608
  Serious: No
  Sender: FDA-Public Use
  Company Number: US-AMGEN-USASP2012002133

PATIENT
  Sex: Female

DRUGS (2)
  1. ENBREL [Suspect]
     Indication: RHEUMATOID ARTHRITIS
     Dosage: 25 MILLIGRAM PREFILLED SYRINGE ON MONDAY AND A 50 MILLIGRAM PREFILLED SYRINGE ON THURSDAY.
     Dates: start: 20090701
  2. ENBREL [Suspect]
     Indication: POUCHITIS

REACTIONS (2)
  - POUCHITIS [None]
  - DIARRHOEA [None]
